FAERS Safety Report 24361597 (Version 1)
Quarter: 2024Q3

REPORT INFORMATION
  Report Type: Spontaneous
  Country: US (occurrence: US)
  Receive Date: 20240925
  Receipt Date: 20240925
  Transmission Date: 20241016
  Serious: No
  Sender: ELI LILLY AND CO
  Company Number: US-ELI_LILLY_AND_COMPANY-US202409014628

PATIENT
  Age: 51 Year
  Sex: Male

DRUGS (1)
  1. LYUMJEV [Suspect]
     Active Substance: INSULIN LISPRO-AABC
     Indication: Product used for unknown indication
     Dosage: UNK UNK, UNKNOWN
     Route: 065

REACTIONS (5)
  - Blood glucose increased [Recovering/Resolving]
  - Thirst [Recovering/Resolving]
  - Pollakiuria [Recovering/Resolving]
  - Pain in extremity [Recovering/Resolving]
  - Vision blurred [Recovering/Resolving]
